FAERS Safety Report 6082912-9 (Version None)
Quarter: 2009Q1

REPORT INFORMATION
  Report Type: 
  Country: None (occurrence: None)
  Receive Date: 20090218
  Receipt Date: 20081229
  Transmission Date: 20090719
  Serious: Yes (Disabling, Other)
  Sender: FDA-Public Use
  Company Number: US-PFIZER INC-2008042397

PATIENT
  Sex: Male
  Weight: 84.09 kg

DRUGS (2)
  1. CHANTIX [Suspect]
     Indication: SMOKING CESSATION THERAPY
     Dosage: 0.5 MG, 1X/DAY
     Dates: start: 20080201
  2. ADVAIR DISKUS 100/50 [Concomitant]

REACTIONS (4)
  - DRUG INEFFECTIVE [None]
  - SURGERY [None]
  - VISION BLURRED [None]
  - VISUAL IMPAIRMENT [None]
